FAERS Safety Report 12209294 (Version 5)
Quarter: 2016Q2

REPORT INFORMATION
  Report Type: Spontaneous
  Country: US (occurrence: US)
  Receive Date: 20160324
  Receipt Date: 20160525
  Transmission Date: 20160815
  Serious: Yes (Hospitalization, Other)
  Sender: FDA-Public Use
  Company Number: US-BAUSCH-BL-2016-006036

PATIENT
  Sex: Male

DRUGS (2)
  1. PROVENGE [Suspect]
     Active Substance: SIPULEUCEL-T
     Indication: PROSTATE CANCER
     Route: 042
     Dates: start: 20160201, end: 20160201
  2. PROVENGE [Suspect]
     Active Substance: SIPULEUCEL-T
     Route: 048
     Dates: start: 20160215, end: 20160215

REACTIONS (3)
  - Thrombosis [Unknown]
  - Pneumonia [Recovering/Resolving]
  - Mononuclear cell count abnormal [Unknown]

NARRATIVE: CASE EVENT DATE: 2016
